FAERS Safety Report 6697336-0 (Version None)
Quarter: 2010Q2

REPORT INFORMATION
  Report Type: 
  Country: None (occurrence: None)
  Receive Date: 20100426
  Receipt Date: 20100416
  Transmission Date: 20101027
  Serious: Yes (Death)
  Sender: FDA-Public Use
  Company Number: CZ-PFIZER INC-2008078997

PATIENT
  Age: 73 Year
  Sex: Female
  Weight: 55 kg

DRUGS (11)
  1. CAMPTOSAR [Suspect]
     Indication: COLORECTAL CANCER
     Dosage: 174 MG, CYCLIC, EVERY 2 WEEKS
     Route: 042
     Dates: start: 20080403
  2. *FLUOROURACIL [Suspect]
     Indication: COLORECTAL CANCER
     Dosage: 388 MG, CYCLIC, EVERY 2 WEEKS
     Route: 040
     Dates: start: 20080403
  3. *FLUOROURACIL [Suspect]
     Dosage: 2331 MG, CYCLIC, EVERY 2 WEEKS
     Route: 041
     Dates: start: 20080403
  4. *CALCIUM FOLINATE [Suspect]
     Indication: COLORECTAL CANCER
     Dosage: 388 MG, CYCLIC, EVERY 2 WEEKS
     Route: 042
     Dates: start: 20080403
  5. SUNITINIB MALATE [Suspect]
     Indication: COLORECTAL CANCER
     Dosage: 25 MG, 1X/DAY
     Route: 048
     Dates: start: 20080403
  6. LOKREN [Concomitant]
     Indication: HYPERTENSION
     Dosage: 20 MG, 1XDAY
     Dates: start: 20020101
  7. ATORVASTATIN CALCIUM [Concomitant]
     Indication: HYPERCHOLESTEROLAEMIA
     Dosage: 20 MG, 1X/DAY
     Dates: start: 20020101
  8. GLUCOPHAGE [Concomitant]
     Indication: DIABETES MELLITUS
     Dosage: 850 MG, 1X/DAY
     Dates: start: 19980101
  9. AKTIFERRIN COMPOSITUM [Concomitant]
     Indication: MINERAL SUPPLEMENTATION
     Dosage: UNK
     Dates: start: 20080319
  10. MEGACE [Concomitant]
     Indication: DECREASED APPETITE
     Dosage: 10 MG, 1X/DAY
     Dates: start: 20080618
  11. POTASSIUM CHLORIDE [Concomitant]
     Indication: HYPOKALAEMIA
     Dosage: 500 MG, 1X/DAY
     Dates: start: 20080430

REACTIONS (1)
  - DEATH [None]
